FAERS Safety Report 16250231 (Version 1)
Quarter: 2019Q2

REPORT INFORMATION
  Report Type: Spontaneous
  Country: US (occurrence: US)
  Receive Date: 20190429
  Receipt Date: 20190429
  Transmission Date: 20190711
  Serious: No
  Sender: FDA-Public Use
  Company Number: US-BAYER-2019-083317

PATIENT
  Sex: Female

DRUGS (2)
  1. CLIMARA PRO [Suspect]
     Active Substance: ESTRADIOL\LEVONORGESTREL
     Indication: MENOPAUSE
     Dosage: UNK
     Route: 062
  2. OMNICEF [Suspect]
     Active Substance: CEFDINIR
     Dosage: 300 MG, BID

REACTIONS (2)
  - Sinusitis [None]
  - Hot flush [None]
